FAERS Safety Report 9193829 (Version 1)
Quarter: 2013Q1

REPORT INFORMATION
  Report Type: Spontaneous
  Country: US (occurrence: None)
  Receive Date: 20130325
  Receipt Date: 20130325
  Transmission Date: 20140127
  Serious: No
  Sender: FDA-Public Use
  Company Number: None

PATIENT
  Sex: Female

DRUGS (1)
  1. HUMIRA PFS [Suspect]
     Indication: PSORIASIS
     Route: 058
     Dates: start: 201112, end: 201103

REACTIONS (1)
  - Pregnancy [None]
